FAERS Safety Report 15482489 (Version 2)
Quarter: 2018Q4

REPORT INFORMATION
  Report Type: Spontaneous
  Country: PT (occurrence: PT)
  Receive Date: 20181010
  Receipt Date: 20181010
  Transmission Date: 20190205
  Serious: Yes (Other)
  Sender: FDA-Public Use
  Company Number: PHHY2018PT118674

PATIENT
  Age: 47 Year
  Sex: Male

DRUGS (2)
  1. TAMOXIFEN [Suspect]
     Active Substance: TAMOXIFEN
     Indication: ENCAPSULATING PERITONEAL SCLEROSIS
     Dosage: 20 MG, Q12H
     Route: 065
  2. PREDNISOLONE. [Suspect]
     Active Substance: PREDNISOLONE
     Indication: ENCAPSULATING PERITONEAL SCLEROSIS
     Dosage: 0.5 MG/KG, QD
     Route: 048

REACTIONS (1)
  - Intestinal obstruction [Unknown]
